FAERS Safety Report 25471561 (Version 2)
Quarter: 2025Q3

REPORT INFORMATION
  Report Type: Report from Study
  Country: JP (occurrence: JP)
  Receive Date: 20250624
  Receipt Date: 20250716
  Transmission Date: 20251021
  Serious: Yes (Death, Other)
  Sender: TAKEDA
  Company Number: JP-TAKEDA-2025TJP006195

PATIENT
  Age: 41 Year
  Sex: Female
  Weight: 47 kg

DRUGS (14)
  1. MARIBAVIR [Suspect]
     Active Substance: MARIBAVIR
     Indication: Cytomegalovirus infection
     Dates: start: 20250313, end: 20250323
  2. TACROLIMUS [Concomitant]
     Active Substance: TACROLIMUS
  3. RUXOLITINIB PHOSPHATE [Concomitant]
     Active Substance: RUXOLITINIB PHOSPHATE
  4. ACYCLOVIR [Concomitant]
     Active Substance: ACYCLOVIR
  5. LEVETIRACETAM [Concomitant]
     Active Substance: LEVETIRACETAM
  6. MEROPENEM [Concomitant]
     Active Substance: MEROPENEM
  7. MICAFUNGIN SODIUM [Concomitant]
     Active Substance: MICAFUNGIN SODIUM
  8. TOBRAMYCIN [Concomitant]
     Active Substance: TOBRAMYCIN
  9. VANCOMYCIN [Concomitant]
     Active Substance: VANCOMYCIN
  10. LENOGRASTIM [Concomitant]
     Active Substance: LENOGRASTIM
  11. NOREPINEPHRINE [Concomitant]
     Active Substance: NOREPINEPHRINE
  12. SULFAMETHOXAZOLE\TRIMETHOPRIM [Concomitant]
     Active Substance: SULFAMETHOXAZOLE\TRIMETHOPRIM
  13. URSODIOL [Concomitant]
     Active Substance: URSODIOL
  14. CARBOCYSTEINE [Concomitant]
     Active Substance: CARBOCYSTEINE

REACTIONS (2)
  - Acute graft versus host disease [Fatal]
  - Interstitial lung disease [Fatal]

NARRATIVE: CASE EVENT DATE: 20250323
